FAERS Safety Report 9899904 (Version 1)
Quarter: 2014Q1

REPORT INFORMATION
  Report Type: Not Available
  Country: US (occurrence: US)
  Receive Date: 20140214
  Receipt Date: 20140214
  Transmission Date: 20141002
  Serious: No
  Sender: FDA-Public Use
  Company Number: US-VIVUS-2013V1000790

PATIENT
  Sex: Female
  Weight: 79 kg

DRUGS (4)
  1. QSYMIA 7.5MG/46MG [Suspect]
     Indication: PRODUCT USED FOR UNKNOWN INDICATION
     Route: 048
     Dates: start: 201308
  2. QSYMIA 15MG/92MG [Suspect]
     Indication: PRODUCT USED FOR UNKNOWN INDICATION
     Route: 048
  3. QSYMIA 15MG/92MG [Suspect]
     Route: 048
     Dates: start: 201310
  4. UNSPECIFIED GENERIC MEDICATION [Concomitant]
     Indication: HORMONE REPLACEMENT THERAPY
     Route: 048
     Dates: start: 2007

REACTIONS (1)
  - Insomnia [Not Recovered/Not Resolved]
